FAERS Safety Report 14302860 (Version 1)
Quarter: 2017Q4

REPORT INFORMATION
  Report Type: Spontaneous
  Country: US (occurrence: US)
  Receive Date: 20171219
  Receipt Date: 20171219
  Transmission Date: 20180321
  Serious: Yes (Hospitalization)
  Sender: FDA-Public Use
  Company Number: US-CIPLA (EU) LIMITED-APC201011-000873

PATIENT

DRUGS (1)
  1. LAMOTRIGINE. [Suspect]
     Active Substance: LAMOTRIGINE
     Indication: TEMPORAL LOBE EPILEPSY
     Dosage: 275 MG, BID
     Route: 065

REACTIONS (12)
  - Hyporeflexia [Recovered/Resolved]
  - Loss of consciousness [Recovered/Resolved]
  - Craniocerebral injury [Recovered/Resolved]
  - Fall [Recovered/Resolved]
  - Nystagmus [Recovered/Resolved]
  - Vertigo [Recovered/Resolved]
  - Toxicity to various agents [Recovered/Resolved]
  - Nausea [Recovered/Resolved]
  - Exposure during pregnancy [Unknown]
  - Electrocardiogram abnormal [Recovered/Resolved]
  - Ataxia [Recovered/Resolved]
  - Dizziness [Recovered/Resolved]
